FAERS Safety Report 26104944 (Version 1)
Quarter: 2025Q4

REPORT INFORMATION
  Report Type: Spontaneous
  Country: US (occurrence: US)
  Receive Date: 20251130
  Receipt Date: 20251130
  Transmission Date: 20260118
  Serious: No
  Sender: ALKEM
  Company Number: None

PATIENT
  Age: 30 Year
  Sex: Female

DRUGS (5)
  1. MYCOPHENOLATE MOFETIL [Suspect]
     Active Substance: MYCOPHENOLATE MOFETIL
     Indication: Glomerulonephritis membranoproliferative
     Dosage: UNK
     Route: 065
  2. PREDNISONE [Concomitant]
     Active Substance: PREDNISONE
     Indication: Glomerulonephritis membranoproliferative
     Dosage: 20 MILLIGRAMS, QD (DAILY)
     Route: 065
  3. PREDNISONE [Concomitant]
     Active Substance: PREDNISONE
     Dosage: UNK (LOW DOSE)
     Route: 065
  4. PREDNISONE [Concomitant]
     Active Substance: PREDNISONE
     Dosage: 5 MILLIGRAM
     Route: 065
  5. PREDNISONE [Concomitant]
     Active Substance: PREDNISONE
     Dosage: 50 MILLIGRAM, QD
     Route: 065

REACTIONS (1)
  - Gastrointestinal disorder [Unknown]
